FAERS Safety Report 12515957 (Version 1)
Quarter: 2016Q2

REPORT INFORMATION
  Report Type: Spontaneous
  Country: SI (occurrence: SI)
  Receive Date: 20160630
  Receipt Date: 20160630
  Transmission Date: 20160815
  Serious: Yes (Other)
  Sender: FDA-Public Use
  Company Number: SI-TEVA-670747ISR

PATIENT
  Age: 47 Year
  Sex: Female

DRUGS (4)
  1. LOPACUT [Concomitant]
  2. CARBOPLATIN 50MG [Suspect]
     Active Substance: CARBOPLATIN
     Indication: OVARIAN CANCER
     Route: 042
     Dates: start: 20160520, end: 20160520
  3. REGLAN [Concomitant]
     Active Substance: METOCLOPRAMIDE HYDROCHLORIDE
  4. TORECAN [Concomitant]
     Active Substance: THIETHYLPERAZINE MALATE

REACTIONS (6)
  - Tachycardia [None]
  - Erythema [None]
  - Dyspnoea [None]
  - Infusion related reaction [Recovered/Resolved]
  - Blood pressure increased [None]
  - Oxygen saturation decreased [None]

NARRATIVE: CASE EVENT DATE: 20160520
